FAERS Safety Report 16945450 (Version 1)
Quarter: 2019Q4

REPORT INFORMATION
  Report Type: Spontaneous
  Country: US (occurrence: US)
  Receive Date: 20190829
  Receipt Date: 20190829
  Transmission Date: 20200122
  Serious: Yes (Hospitalization)
  Sender: FDA-Public Use
  Company Number: None

PATIENT
  Age: 3 Year
  Sex: Male
  Weight: 14.7 kg

DRUGS (7)
  1. DEXAMETHASONE INJECTION [Concomitant]
     Active Substance: DEXAMETHASONE
  2. DIPHENHYDRAMINE. [Concomitant]
     Active Substance: DIPHENHYDRAMINE
  3. INTRATHECAL CYTARABINE [Concomitant]
  4. DOCUSATE [Concomitant]
     Active Substance: DOCUSATE
  5. VINCRISTINE SULFATE. [Suspect]
     Active Substance: VINCRISTINE SULFATE
     Dates: end: 20190817
  6. ACETAMINOPHEN. [Concomitant]
     Active Substance: ACETAMINOPHEN
  7. DEXAMETHASON TABLET [Concomitant]

REACTIONS (2)
  - Brain oedema [None]
  - Subarachnoid haemorrhage [None]

NARRATIVE: CASE EVENT DATE: 20190820
